FAERS Safety Report 7636055-0 (Version None)
Quarter: 2011Q3

REPORT INFORMATION
  Report Type: 
  Country: None (occurrence: None)
  Receive Date: 20110726
  Receipt Date: 20110719
  Transmission Date: 20111222
  Serious: Yes (Hospitalization, Congenital Anomaly)
  Sender: FDA-Public Use
  Company Number: NL-PFIZER INC-2011163967

PATIENT
  Sex: Male

DRUGS (1)
  1. SERTRALINE HYDROCHLORIDE [Suspect]
     Indication: DEPRESSION
     Route: 064

REACTIONS (8)
  - MATERNAL EXPOSURE DURING PREGNANCY [None]
  - HYPOTONIA NEONATAL [None]
  - BRADYCARDIA FOETAL [None]
  - IRRITABILITY [None]
  - HYPERBILIRUBINAEMIA [None]
  - CAPUT SUCCEDANEUM [None]
  - HAEMATOMA [None]
  - PALLOR [None]
